FAERS Safety Report 8334356-4 (Version None)
Quarter: 2012Q2

REPORT INFORMATION
  Report Type: 
  Country: None (occurrence: None)
  Receive Date: 20120503
  Receipt Date: 20120501
  Transmission Date: 20120825
  Serious: Yes (Death, Other)
  Sender: FDA-Public Use
  Company Number: PHHY2012JP037037

PATIENT
  Age: 77 Year
  Sex: Male

DRUGS (2)
  1. METHOTREXATE [Suspect]
     Indication: RHEUMATOID ARTHRITIS
     Dosage: 6 MG, QW
  2. TACROLIMUS [Suspect]
     Indication: RHEUMATOID ARTHRITIS
     Dosage: 1 MG, UNK

REACTIONS (5)
  - LUNG NEOPLASM [None]
  - PLEURAL EFFUSION [None]
  - LYMPHADENOPATHY [None]
  - RESPIRATORY DISTRESS [None]
  - BURKITT'S LYMPHOMA [None]
